FAERS Safety Report 11309604 (Version 1)
Quarter: 2015Q3

REPORT INFORMATION
  Report Type: Spontaneous
  Country: JP (occurrence: JP)
  Receive Date: 20150724
  Receipt Date: 20150724
  Transmission Date: 20151125
  Serious: Yes (Other)
  Sender: FDA-Public Use
  Company Number: PHHY2015JP086558

PATIENT
  Age: 65 Year
  Sex: Female

DRUGS (6)
  1. TACROLIMUS. [Concomitant]
     Active Substance: TACROLIMUS
     Indication: IMMUNOSUPPRESSION
     Route: 065
  2. MYCOPHENOLATE MOFETIL. [Suspect]
     Active Substance: MYCOPHENOLATE MOFETIL
     Indication: IMMUNOSUPPRESSION
     Dosage: 500 MG, QD
     Route: 065
  3. INTERFERON [Concomitant]
     Active Substance: INTERFERON
     Indication: HEPATITIS C VIRUS TEST POSITIVE
     Route: 065
  4. SIMEPREVIR [Concomitant]
     Active Substance: SIMEPREVIR
     Indication: HEPATITIS C VIRUS TEST POSITIVE
     Route: 065
  5. RIBAVIRIN. [Interacting]
     Active Substance: RIBAVIRIN
     Indication: HEPATITIS C VIRUS TEST POSITIVE
     Dosage: 600 MG, QD
     Route: 065
  6. RIBAVIRIN. [Interacting]
     Active Substance: RIBAVIRIN
     Dosage: 400 MG, QD
     Route: 065

REACTIONS (2)
  - Anaemia [Recovering/Resolving]
  - Drug interaction [Unknown]
